FAERS Safety Report 14799137 (Version 1)
Quarter: 2018Q2

REPORT INFORMATION
  Report Type: Spontaneous
  Country: US (occurrence: US)
  Receive Date: 20180416
  Receipt Date: 20180416
  Transmission Date: 20180711
  Serious: Yes (Hospitalization, Other)
  Sender: FDA-Public Use
  Company Number: None

PATIENT
  Age: 75 Year
  Sex: Female
  Weight: 90 kg

DRUGS (12)
  1. LEXAPRO [Concomitant]
     Active Substance: ESCITALOPRAM OXALATE
  2. MILK WEED [Concomitant]
  3. ISORBIDE [Concomitant]
     Active Substance: ISOSORBIDE
  4. OXBILE [Concomitant]
  5. VITAMIN D [Concomitant]
     Active Substance: CHOLECALCIFEROL
  6. FISH OIL [Concomitant]
     Active Substance: FISH OIL
  7. ROVOSTATIN [Suspect]
     Active Substance: ROSUVASTATIN
     Indication: CORONARY ARTERY DISEASE
  8. METOPROLOL. [Concomitant]
     Active Substance: METOPROLOL
  9. LISINIPRIL [Concomitant]
     Active Substance: LISINOPRIL
  10. GLUCOSAMINE CHONDROITIN [Concomitant]
     Active Substance: CHONDROITIN SULFATE (BOVINE)\GLUCOSAMINE HYDROCHLORIDE
  11. ASPIRIN. [Concomitant]
     Active Substance: ASPIRIN
  12. VITAMIN B [Concomitant]
     Active Substance: VITAMIN B

REACTIONS (9)
  - Muscle injury [None]
  - Influenza [None]
  - Chest pain [None]
  - Abdominal distension [None]
  - Migraine [None]
  - Coronary arterial stent insertion [None]
  - Fall [None]
  - Pain [None]
  - Asthenia [None]
